FAERS Safety Report 9804146 (Version 2)
Quarter: 2014Q1

REPORT INFORMATION
  Report Type: Spontaneous
  Country: US (occurrence: None)
  Receive Date: 20140106
  Receipt Date: 20140114
  Transmission Date: 20141002
  Serious: Yes (Hospitalization, Other)
  Sender: FDA-Public Use
  Company Number: ADR-2014-00006

PATIENT
  Age: 71 Year
  Sex: Female

DRUGS (4)
  1. BACLOFEN [Suspect]
     Indication: CANCER PAIN
  2. BACLOFEN [Suspect]
     Indication: NEOPLASM MALIGNANT
  3. DILAUDID [Suspect]
  4. BUPIVACAINE [Suspect]

REACTIONS (12)
  - Cerebrospinal fluid leakage [None]
  - Infection [None]
  - Drug withdrawal syndrome [None]
  - Diarrhoea [None]
  - Pain [None]
  - Nausea [None]
  - Tremor [None]
  - Headache [None]
  - Implant site infection [None]
  - Tremor [None]
  - Implant site erythema [None]
  - Implant site swelling [None]
